FAERS Safety Report 4874918-X (Version None)
Quarter: 2006Q1

REPORT INFORMATION
  Report Type: 
  Country: None (occurrence: None)
  Receive Date: 20060106
  Receipt Date: 20051222
  Transmission Date: 20060701
  Serious: Yes (Death)
  Sender: FDA-Public Use
  Company Number: 2005-US-01548

PATIENT
  Age: 56 Year
  Sex: Male

DRUGS (1)
  1. CLOZAPINE [Suspect]
     Dosage: 50 MG, QD, ORAL
     Route: 048
     Dates: start: 19990801, end: 20051101

REACTIONS (1)
  - CEREBROVASCULAR ACCIDENT [None]
